FAERS Safety Report 10022348 (Version 1)
Quarter: 2014Q1

REPORT INFORMATION
  Report Type: Spontaneous
  Country: US (occurrence: None)
  Receive Date: 20140318
  Receipt Date: 20140318
  Transmission Date: 20141002
  Serious: No
  Sender: FDA-Public Use
  Company Number: None

PATIENT
  Age: 18 Year
  Sex: Male
  Weight: 70.76 kg

DRUGS (1)
  1. DURAPREP [Suspect]
     Indication: ARTERIOVENOUS FISTULA OPERATION
     Dosage: SKIN PREP
     Dates: start: 20140220

REACTIONS (3)
  - Blister [None]
  - Burns first degree [None]
  - Burns second degree [None]
